FAERS Safety Report 25866146 (Version 1)
Quarter: 2025Q3

REPORT INFORMATION
  Report Type: Report from Study
  Country: US (occurrence: US)
  Receive Date: 20250930
  Receipt Date: 20250930
  Transmission Date: 20251020
  Serious: Yes (Other)
  Sender: ALNYLAM PHARMACEUTICALS
  Company Number: US-ALNYLAM PHARMACEUTICALS, INC.-ALN-2025-005876

PATIENT
  Age: 85 Year

DRUGS (2)
  1. AMVUTTRA [Suspect]
     Active Substance: VUTRISIRAN
     Indication: Hereditary neuropathic amyloidosis
     Route: 065
  2. AMVUTTRA [Suspect]
     Active Substance: VUTRISIRAN
     Indication: Acquired ATTR amyloidosis

REACTIONS (2)
  - Spinal operation [Unknown]
  - Therapy interrupted [Unknown]
